FAERS Safety Report 7787370-1 (Version None)
Quarter: 2011Q3

REPORT INFORMATION
  Report Type: 
  Country: None (occurrence: None)
  Receive Date: 20110927
  Receipt Date: 20110921
  Transmission Date: 20111222
  Serious: Yes (Other)
  Sender: FDA-Public Use
  Company Number: 201110944

PATIENT
  Sex: Female

DRUGS (1)
  1. LIORESAL [Suspect]
     Indication: MUSCLE SPASTICITY
     Dosage: 315.2 MCG, DAILY, INTRATHECAL
     Route: 037

REACTIONS (5)
  - DEPRESSION [None]
  - EUSTACHIAN TUBE DYSFUNCTION [None]
  - ANXIETY [None]
  - EAR DISCOMFORT [None]
  - DIPLOPIA [None]
